FAERS Safety Report 16163010 (Version 1)
Quarter: 2019Q2

REPORT INFORMATION
  Report Type: Spontaneous
  Country: US (occurrence: US)
  Receive Date: 20190304
  Receipt Date: 20190304
  Transmission Date: 20190711
  Serious: Yes (Other)
  Sender: FDA-Public Use
  Company Number: None

PATIENT
  Age: 48 Year

DRUGS (1)
  1. CBD OIL [Suspect]
     Active Substance: CANNABIDIOL\HERBALS
     Dosage: 40 DROPS
     Dates: start: 201902, end: 201902

REACTIONS (4)
  - Nausea [None]
  - Tremor [None]
  - Anxiety [None]
  - Dyspnoea [None]
